FAERS Safety Report 10687344 (Version 2)
Quarter: 2015Q1

REPORT INFORMATION
  Report Type: Report from Study
  Country: AU (occurrence: AU)
  Receive Date: 20150102
  Receipt Date: 20150102
  Transmission Date: 20150720
  Serious: Yes (Hospitalization, Other)
  Sender: FDA-Public Use
  Company Number: PHHY2014AU131495

PATIENT
  Age: 25 Year
  Sex: Male
  Weight: 65 kg

DRUGS (4)
  1. ARIPIPRAZOLE. [Concomitant]
     Active Substance: ARIPIPRAZOLE
     Dosage: 60 MG, UNK
     Route: 065
  2. CLOZARIL [Suspect]
     Active Substance: CLOZAPINE
     Indication: SCHIZOPHRENIA
     Dosage: UNK
     Route: 048
     Dates: start: 20140918, end: 20141003
  3. ARIPIPRAZOLE. [Concomitant]
     Active Substance: ARIPIPRAZOLE
     Indication: PRODUCT USED FOR UNKNOWN INDICATION
     Dosage: 30 MG, UNK
     Route: 065
  4. LORAZEPAM. [Concomitant]
     Active Substance: LORAZEPAM
     Indication: PRODUCT USED FOR UNKNOWN INDICATION
     Dosage: UNK UNK, Q2H (1 TO 2 MG)
     Route: 065

REACTIONS (20)
  - Blood pressure systolic increased [Unknown]
  - Pyrexia [Unknown]
  - Sleep disorder [Unknown]
  - Decreased appetite [Recovering/Resolving]
  - Chest pain [Unknown]
  - Epistaxis [Unknown]
  - Abdominal tenderness [Unknown]
  - Abdominal pain [Unknown]
  - Tachyarrhythmia [Unknown]
  - Dysuria [Recovered/Resolved]
  - Chills [Unknown]
  - Vomiting [Unknown]
  - Platelet count decreased [Not Recovered/Not Resolved]
  - Myocarditis [Recovered/Resolved]
  - Pain [Unknown]
  - Headache [Unknown]
  - Lymphocyte count decreased [Unknown]
  - Constipation [Unknown]
  - Salivary hypersecretion [Unknown]
  - Diarrhoea [Unknown]

NARRATIVE: CASE EVENT DATE: 20140929
